FAERS Safety Report 18253147 (Version 5)
Quarter: 2020Q4

REPORT INFORMATION
  Report Type: Report from Study
  Country: IL (occurrence: IL)
  Receive Date: 20200910
  Receipt Date: 20201016
  Transmission Date: 20210113
  Serious: Yes (Hospitalization)
  Sender: FDA-Public Use
  Company Number: IL-BAYER-2020-189865

PATIENT
  Age: 6 Month
  Sex: Female
  Weight: 7.22 kg

DRUGS (5)
  1. LAROTRECTINIB [Suspect]
     Active Substance: LAROTRECTINIB
     Indication: CONGENITAL FIBROSARCOMA
     Dosage: UNK
     Dates: start: 20200507
  2. LAROTRECTINIB [Suspect]
     Active Substance: LAROTRECTINIB
     Indication: CONGENITAL FIBROSARCOMA
     Dosage: 36 MG, BID (1.8MLX2/DAY)
     Route: 048
     Dates: end: 20200904
  3. LAROTRECTINIB [Suspect]
     Active Substance: LAROTRECTINIB
     Indication: CONGENITAL FIBROSARCOMA
     Dosage: 28 MG, BID
     Route: 048
     Dates: start: 20200908, end: 20200920
  4. LAROTRECTINIB [Suspect]
     Active Substance: LAROTRECTINIB
     Indication: CONGENITAL FIBROSARCOMA
     Dosage: 1.4MLX2/DAY
     Dates: start: 20200923, end: 20200926
  5. LAROTRECTINIB [Suspect]
     Active Substance: LAROTRECTINIB
     Indication: CONGENITAL FIBROSARCOMA
     Dosage: 1.4MLX2/DAY
     Dates: start: 20200928, end: 20200928

REACTIONS (3)
  - Vomiting [Recovered/Resolved]
  - Irritability [Recovered/Resolved]
  - Vomiting [Recovered/Resolved]

NARRATIVE: CASE EVENT DATE: 20200903
